FAERS Safety Report 4851202-1 (Version None)
Quarter: 2005Q4

REPORT INFORMATION
  Report Type: 
  Country: None (occurrence: None)
  Receive Date: 20051208
  Receipt Date: 20051116
  Transmission Date: 20060501
  Serious: Yes (Hospitalization, Other)
  Sender: FDA-Public Use
  Company Number: US200511001313

PATIENT
  Age: 70 Year
  Sex: Female
  Weight: 72.6 kg

DRUGS (12)
  1. HUMALOG MIX 75/25 [Suspect]
     Indication: DIABETES MELLITUS
     Dates: start: 19950101
  2. HUMALOG MIX 75/25 [Suspect]
     Indication: DIABETES MELLITUS
     Dosage: 31 U, EACH MORNING
     Dates: start: 20051102
  3. HUMALOG MIX 25L/75NPL PEN (HUMALOG MIX 25L / 75 NPL PEN) [Concomitant]
  4. ... [Concomitant]
  5. LIPITOR [Concomitant]
  6. GLUCOPHAGE [Concomitant]
  7. NIACIN [Concomitant]
  8. SYNTHROID [Concomitant]
  9. ALLEGRA D 24 HOUR [Concomitant]
  10. ASPIRIN [Concomitant]
  11. NOVOLOG [Concomitant]
  12. CLARITIN [Concomitant]

REACTIONS (16)
  - ANKLE FRACTURE [None]
  - BLOOD CHOLESTEROL INCREASED [None]
  - BLOOD GLUCOSE DECREASED [None]
  - BLOOD GLUCOSE INCREASED [None]
  - BLOOD TRIGLYCERIDES INCREASED [None]
  - COUGH [None]
  - DRUG INEFFECTIVE [None]
  - FALL [None]
  - HYPERHIDROSIS [None]
  - MOBILITY DECREASED [None]
  - MUSCLE SPASMS [None]
  - NECK PAIN [None]
  - PAIN [None]
  - PHARMACEUTICAL PRODUCT COMPLAINT [None]
  - POOR QUALITY DRUG ADMINISTERED [None]
  - VIRAL INFECTION [None]
